FAERS Safety Report 7465262-5 (Version None)
Quarter: 2011Q2

REPORT INFORMATION
  Report Type: 
  Country: None (occurrence: None)
  Receive Date: 20110509
  Receipt Date: 20110426
  Transmission Date: 20111010
  Serious: Yes (Hospitalization)
  Sender: FDA-Public Use
  Company Number: PHHY2011NL19993

PATIENT
  Sex: Male

DRUGS (14)
  1. BETAHISTINE [Concomitant]
  2. ZOMETA [Suspect]
     Dosage: UNK
     Dates: start: 20110426
  3. ZOMETA [Suspect]
     Dosage: UNK
     Dates: start: 20110411
  4. CALCICHEW [Concomitant]
  5. OXYNORM [Concomitant]
  6. RAMIPRIL [Concomitant]
  7. SPIRIVA [Concomitant]
  8. ZOMETA [Suspect]
     Indication: BRONCHIAL CARCINOMA
     Dosage: 4 MG, PER 5 ML EVERY 21 DAYS
     Route: 042
     Dates: start: 20110125
  9. OXYCONTIN [Concomitant]
  10. SERETIDE [Concomitant]
  11. ALBUTEROL SULFATE AUTOHALER [Concomitant]
  12. CHEMOTHERAPEUTICS NOS [Concomitant]
     Dosage: UNK
     Dates: start: 20110411
  13. ZOMETA [Suspect]
     Dosage: 4 MG, PER 5 ML EVERY 21 DAYS
     Route: 042
     Dates: start: 20110215
  14. LACTULOSE [Concomitant]

REACTIONS (3)
  - CHEST DISCOMFORT [None]
  - PYREXIA [None]
  - WHITE BLOOD CELL COUNT DECREASED [None]
